FAERS Safety Report 17154562 (Version 1)
Quarter: 2019Q4

REPORT INFORMATION
  Report Type: Spontaneous
  Country: SE (occurrence: SE)
  Receive Date: 20191213
  Receipt Date: 20191213
  Transmission Date: 20200122
  Serious: Yes (Other)
  Sender: FDA-Public Use
  Company Number: SE-CANTON LABORATORIES, LLC-2077835

PATIENT
  Age: 68 Year
  Sex: Female

DRUGS (4)
  1. CIPROFLOXACIN HYDROCHLORIDE. [Interacting]
     Active Substance: CIPROFLOXACIN HYDROCHLORIDE
     Route: 065
  2. NAPROSYN [Suspect]
     Active Substance: NAPROXEN
     Indication: ANALGESIC INTERVENTION SUPPORTIVE THERAPY
     Route: 065
  3. CHLOROQUINE. [Interacting]
     Active Substance: CHLOROQUINE
     Route: 065
  4. INDOMETACIN [Interacting]
     Active Substance: INDOMETHACIN
     Route: 065

REACTIONS (13)
  - Decreased vibratory sense [Recovering/Resolving]
  - Peripheral swelling [Recovering/Resolving]
  - Systemic lupus erythematosus [Unknown]
  - Toxicity to various agents [Recovering/Resolving]
  - Polyneuropathy [Unknown]
  - Erythema [Recovering/Resolving]
  - Tremor [Unknown]
  - Anxiety [Unknown]
  - Syncope [Recovering/Resolving]
  - Dizziness [Recovering/Resolving]
  - Drug interaction [Recovering/Resolving]
  - Nerve degeneration [Recovering/Resolving]
  - Pain in extremity [Recovering/Resolving]
